FAERS Safety Report 10313884 (Version 1)
Quarter: 2014Q3

REPORT INFORMATION
  Report Type: Spontaneous
  Country: US (occurrence: None)
  Receive Date: 20140717
  Receipt Date: 20140717
  Transmission Date: 20150326
  Serious: Yes (Life-Threatening, Hospitalization)
  Sender: FDA-Public Use
  Company Number: None

PATIENT
  Age: 53 Year
  Sex: Female
  Weight: 54.43 kg

DRUGS (1)
  1. BONIVA [Suspect]
     Active Substance: IBANDRONATE SODIUM
     Indication: OSTEOPOROSIS
     Dosage: 3MG/ML, EVERY 3 MONTHS, IV PUSH
     Route: 042
     Dates: start: 20140327, end: 20140627

REACTIONS (3)
  - Paraesthesia [None]
  - Loss of consciousness [None]
  - Burning sensation [None]

NARRATIVE: CASE EVENT DATE: 20140627
